FAERS Safety Report 20322488 (Version 4)
Quarter: 2022Q1

REPORT INFORMATION
  Report Type: Report from Study
  Country: US (occurrence: US)
  Receive Date: 20220111
  Receipt Date: 20220208
  Transmission Date: 20220423
  Serious: No
  Sender: FDA-Public Use
  Company Number: US-NOVARTISTESTPH-NVSC2022US004489

PATIENT
  Sex: Male

DRUGS (1)
  1. ENTRESTO [Suspect]
     Active Substance: SACUBITRIL\VALSARTAN
     Indication: Product used for unknown indication
     Dosage: UNK UNK, BID(24/26MG)
     Route: 065

REACTIONS (11)
  - Cough [Unknown]
  - Throat clearing [Unknown]
  - Feeling hot [Unknown]
  - Agitation [Unknown]
  - Lip swelling [Unknown]
  - Nasal congestion [Unknown]
  - Lip dry [Unknown]
  - Dry mouth [Unknown]
  - Hypoaesthesia [Unknown]
  - Pharyngeal swelling [Unknown]
  - Mouth swelling [Unknown]
